FAERS Safety Report 16005647 (Version 1)
Quarter: 2019Q1

REPORT INFORMATION
  Report Type: Spontaneous
  Country: US (occurrence: US)
  Receive Date: 20190130
  Receipt Date: 20190130
  Transmission Date: 20190418
  Serious: Yes (Hospitalization)
  Sender: FDA-Public Use
  Company Number: None

PATIENT
  Age: 55 Year
  Sex: Male
  Weight: 96.16 kg

DRUGS (4)
  1. CLOZAPINE. [Concomitant]
     Active Substance: CLOZAPINE
  2. TRILEPTAL [Suspect]
     Active Substance: OXCARBAZEPINE
  3. AMANTADINE. [Concomitant]
     Active Substance: AMANTADINE HYDROCHLORIDE
  4. DIVALPROEX ER [Concomitant]
     Active Substance: DIVALPROEX SODIUM

REACTIONS (5)
  - Mental status changes [None]
  - Gait disturbance [None]
  - Hyponatraemia [None]
  - Dysarthria [None]
  - Delirium [None]

NARRATIVE: CASE EVENT DATE: 20181213
